FAERS Safety Report 5119502-8 (Version None)
Quarter: 2006Q4

REPORT INFORMATION
  Report Type: 
  Country: None (occurrence: None)
  Receive Date: 20061003
  Receipt Date: 20020319
  Transmission Date: 20070319
  Serious: Yes (Death, Life-Threatening, Hospitalization)
  Sender: FDA-Public Use
  Company Number: US-BRISTOL-MYERS SQUIBB COMPANY-11783727

PATIENT
  Age: 48 Year
  Sex: Male
  Weight: 78 kg

DRUGS (4)
  1. BONOQ [Suspect]
     Indication: PNEUMONIA
     Route: 048
     Dates: start: 20011212, end: 20011214
  2. NSAID [Concomitant]
     Dates: start: 20010801
  3. VIANI [Concomitant]
     Indication: ASTHMA
  4. AMOXICILLIN TRIHYDRATE [Concomitant]
     Dates: start: 20000208

REACTIONS (4)
  - CANDIDIASIS [None]
  - CARDIAC FAILURE [None]
  - DEATH [None]
  - MYOCARDITIS [None]
